FAERS Safety Report 21143883 (Version 1)
Quarter: 2022Q3

REPORT INFORMATION
  Report Type: Spontaneous
  Country: US (occurrence: None)
  Receive Date: 20220728
  Receipt Date: 20220728
  Transmission Date: 20221027
  Serious: Yes (Other)
  Sender: FDA-Public Use
  Company Number: None

PATIENT
  Age: 62 Year
  Sex: Male
  Weight: 85.95 kg

DRUGS (28)
  1. FLUOXETINE [Suspect]
     Active Substance: FLUOXETINE HYDROCHLORIDE
     Indication: Depression
     Dosage: OTHER QUANTITY : 1 CAPSULE(S);?
     Route: 048
     Dates: start: 20220620
  2. ALLEGRA [Concomitant]
     Active Substance: FEXOFENADINE HYDROCHLORIDE
  3. FARXIGA [Concomitant]
     Active Substance: DAPAGLIFLOZIN PROPANEDIOL
  4. FLONASE [Concomitant]
     Active Substance: FLUTICASONE PROPIONATE
  5. FLUOXETINE [Concomitant]
  6. GLYCERYL TRINITRATE [Concomitant]
  7. JANUVIA [Concomitant]
     Active Substance: SITAGLIPTIN PHOSPHATE
  8. LOVAZA [Concomitant]
     Active Substance: OMEGA-3-ACID ETHYL ESTERS
  9. PRILOSEC [Concomitant]
     Active Substance: OMEPRAZOLE MAGNESIUM
  10. PEPCID AC [Concomitant]
     Active Substance: FAMOTIDINE
  11. PROAIR HFA [Concomitant]
     Active Substance: ALBUTEROL SULFATE
  12. SYNTHROID [Concomitant]
     Active Substance: LEVOTHYROXINE SODIUM
  13. TAMSULOSIN HCL [Concomitant]
  14. TOPROL XL [Concomitant]
  15. VYTORIN [Concomitant]
     Active Substance: EZETIMIBE\SIMVASTATIN
  16. ZOCOR [Concomitant]
     Active Substance: SIMVASTATIN
  17. WELLBUTRIN XL [Concomitant]
     Active Substance: BUPROPION HYDROCHLORIDE
  18. ALLEGRA [Concomitant]
     Active Substance: FEXOFENADINE HYDROCHLORIDE
  19. ASPIRIN [Concomitant]
     Active Substance: ASPIRIN
  20. FLONASE [Concomitant]
     Active Substance: FLUTICASONE PROPIONATE
  21. FOLIC ACID [Concomitant]
     Active Substance: FOLIC ACID
  22. MELATONIN [Concomitant]
     Active Substance: MELATONIN
  23. ONE-A-DAY MEN^S [Concomitant]
  24. PRILOSEC [Concomitant]
  25. PEPSID AC [Concomitant]
  26. TYLENOL [Concomitant]
  27. COLACE [Concomitant]
     Active Substance: DOCUSATE SODIUM
  28. SENECOT-S [Concomitant]

REACTIONS (3)
  - Dyspepsia [None]
  - Foreign body in throat [None]
  - Oesophageal pain [None]

NARRATIVE: CASE EVENT DATE: 20220726
